FAERS Safety Report 8407922 (Version 7)
Quarter: 2013Q1

REPORT INFORMATION
  Report Type: Report from Study
  Country: ES (occurrence: ES)
  Receive Date: 20120215
  Receipt Date: 20130222
  Transmission Date: 20140127
  Serious: Yes (Death, Hospitalization)
  Sender: FDA-Public Use
  Company Number: ES-ROCHE-1037165

PATIENT
  Age: 64 Year
  Sex: Male
  Weight: 68 kg

DRUGS (2)
  1. VEMURAFENIB [Suspect]
     Indication: METASTATIC MALIGNANT MELANOMA
     Route: 048
     Dates: start: 20110922, end: 20120131
  2. OMEPRAZOLE [Concomitant]
     Route: 065
     Dates: start: 20110922

REACTIONS (1)
  - Sepsis [Fatal]
